FAERS Safety Report 8205281-4 (Version None)
Quarter: 2012Q1

REPORT INFORMATION
  Report Type: 
  Country: None (occurrence: None)
  Receive Date: 20120313
  Receipt Date: 20120228
  Transmission Date: 20120608
  Serious: Yes (Hospitalization)
  Sender: FDA-Public Use
  Company Number: US-ROCHE-GNE313935

PATIENT
  Sex: Female
  Weight: 1.476 kg

DRUGS (4)
  1. OMALIZUMAB [Suspect]
     Dosage: UNK
     Route: 063
     Dates: start: 20110208
  2. MULTI-VITAMIN [Concomitant]
  3. OMALIZUMAB [Suspect]
     Indication: ASTHMA
     Route: 064
     Dates: start: 20100601
  4. OMALIZUMAB [Suspect]
     Dates: start: 20111027

REACTIONS (2)
  - PREMATURE BABY [None]
  - ASTHMA [None]
